FAERS Safety Report 19737738 (Version 1)
Quarter: 2021Q3

REPORT INFORMATION
  Report Type: Spontaneous
  Country: US (occurrence: US)
  Receive Date: 20210820
  Receipt Date: 20210820
  Transmission Date: 20211014
  Serious: Yes (Death)
  Sender: FDA-Public Use
  Company Number: None

PATIENT
  Age: 65 Year
  Sex: Female

DRUGS (2)
  1. WARFARIN [Suspect]
     Active Substance: WARFARIN
  2. ASPIRIN. [Suspect]
     Active Substance: ASPIRIN

REACTIONS (3)
  - International normalised ratio increased [None]
  - Seizure [None]
  - Pulmonary haemosiderosis [None]

NARRATIVE: CASE EVENT DATE: 20210331
